FAERS Safety Report 7535348-5 (Version None)
Quarter: 2011Q2

REPORT INFORMATION
  Report Type: 
  Country: None (occurrence: None)
  Receive Date: 20110609
  Receipt Date: 20080424
  Transmission Date: 20111010
  Serious: Yes (Death, Hospitalization)
  Sender: FDA-Public Use
  Company Number: PHHY2008CA05338

PATIENT
  Sex: Male

DRUGS (4)
  1. SINEMET REGULAR [Concomitant]
  2. SINEMET CR [Concomitant]
     Dosage: 200, 1/2 TAB TID.
  3. CLOZAPINE [Suspect]
     Indication: PARKINSONISM
     Dosage: 25 MG, QD
     Route: 048
     Dates: start: 20030305
  4. MIRAPEX [Concomitant]
     Dosage: AT 11:00 + 3:00

REACTIONS (2)
  - RESPIRATORY DISTRESS [None]
  - DEATH [None]
